FAERS Safety Report 5249644-8 (Version None)
Quarter: 2007Q1

REPORT INFORMATION
  Report Type: 
  Country: None (occurrence: None)
  Receive Date: 20070228
  Receipt Date: 20061109
  Transmission Date: 20070707
  Serious: No
  Sender: FDA-Public Use
  Company Number: US-GLAXOSMITHKLINE-A0607615A

PATIENT
  Age: 38 Year
  Sex: Female

DRUGS (5)
  1. IMITREX [Suspect]
     Indication: MIGRAINE
     Dosage: 6MG AS REQUIRED
     Route: 058
     Dates: start: 20050101
  2. TOPAMAX [Concomitant]
  3. VERAPAMIL [Concomitant]
  4. PHENERGAN HCL [Concomitant]
  5. ANAPROX [Concomitant]

REACTIONS (5)
  - CHEST DISCOMFORT [None]
  - DRUG INEFFECTIVE [None]
  - HEADACHE [None]
  - PHARMACEUTICAL PRODUCT COMPLAINT [None]
  - THROAT TIGHTNESS [None]
